FAERS Safety Report 7712279-9 (Version None)
Quarter: 2011Q3

REPORT INFORMATION
  Report Type: 
  Country: None (occurrence: None)
  Receive Date: 20110822
  Receipt Date: 20110414
  Transmission Date: 20111222
  Serious: No
  Sender: FDA-Public Use
  Company Number: FDB-2011-020

PATIENT
  Age: 81 Year
  Sex: Male

DRUGS (1)
  1. TECHNETIUM TC 99M DIPHOSPHONATE-TIN KIT [Suspect]
     Dosage: 3ML, IV
     Route: 042

REACTIONS (2)
  - OEDEMA PERIPHERAL [None]
  - EXTRAVASATION [None]
